FAERS Safety Report 7516809-1 (Version None)
Quarter: 2011Q2

REPORT INFORMATION
  Report Type: 
  Country: None (occurrence: None)
  Receive Date: 20110601
  Receipt Date: 20110526
  Transmission Date: 20111010
  Serious: Yes (Hospitalization, Other)
  Sender: FDA-Public Use
  Company Number: GB-MERCK-1105USA04000

PATIENT
  Age: 69 Year
  Sex: Female
  Weight: 86 kg

DRUGS (6)
  1. DECADRON [Suspect]
     Route: 048
     Dates: start: 20110222, end: 20110304
  2. VELCADE [Suspect]
     Route: 042
     Dates: start: 20101026
  3. OMEPRAZOLE [Concomitant]
     Route: 048
     Dates: start: 20101026
  4. DECADRON [Suspect]
     Indication: MULTIPLE MYELOMA
     Route: 048
     Dates: start: 20101026, end: 20101220
  5. VELCADE [Suspect]
     Indication: MULTIPLE MYELOMA
     Route: 042
     Dates: start: 20110222, end: 20110304
  6. DECADRON [Suspect]
     Route: 048
     Dates: end: 20110329

REACTIONS (6)
  - PERIPHERAL SENSORY NEUROPATHY [None]
  - HYPOALBUMINAEMIA [None]
  - DIARRHOEA [None]
  - ARTHRALGIA [None]
  - PNEUMONIA [None]
  - OEDEMA PERIPHERAL [None]
